FAERS Safety Report 17057877 (Version 1)
Quarter: 2019Q4

REPORT INFORMATION
  Report Type: Spontaneous
  Country: US (occurrence: US)
  Receive Date: 20191120
  Receipt Date: 20191120
  Transmission Date: 20200122
  Serious: Yes (Death)
  Sender: FDA-Public Use
  Company Number: None

PATIENT
  Age: 70 Year
  Sex: Male

DRUGS (6)
  1. ZOLPIDEM TARTRATE 10MG ORAL TABLET [Concomitant]
  2. TOPIRAMATE 50MG ORAL TABLET [Concomitant]
  3. TAFINLAR [Concomitant]
     Active Substance: DABRAFENIB MESYLATE
  4. FOLIC ACID 1MG ORAL TABLET [Concomitant]
  5. MEKINIST [Suspect]
     Active Substance: TRAMETINIB DIMETHYL SULFOXIDE
     Indication: MALIGNANT MELANOMA
     Route: 048
  6. LACTULOSE 10 G/ML ORAL SOLUTION [Concomitant]

REACTIONS (1)
  - Death [None]

NARRATIVE: CASE EVENT DATE: 20191114
